FAERS Safety Report 9202076 (Version 3)
Quarter: 2013Q3

REPORT INFORMATION
  Report Type: Spontaneous
  Country: FR (occurrence: None)
  Receive Date: 20130325
  Receipt Date: 20130905
  Transmission Date: 20140515
  Serious: Yes (Life-Threatening, Hospitalization, Other)
  Sender: FDA-Public Use
  Company Number: 2013035117

PATIENT
  Age: 64 Year
  Sex: Female

DRUGS (15)
  1. PRIVIGEN [Suspect]
     Indication: THROMBOCYTOPENIA
     Dosage: TOTAL, INFUSION RATE: 20ML/HR,  (NOT OTHERWISE SPECIFIED)
     Route: 042
     Dates: start: 20130301
  2. TRUVADA (TRUVADA) [Concomitant]
  3. NORVIR (RITONAVIR) [Concomitant]
  4. ANTIVIRALS FOR SYSTEMIC USE (ANTIVIRALS FOR SYSTEMIC USE) [Concomitant]
  5. FUNGIZONE (AMPHOTERICIN B) [Concomitant]
  6. DUPHALAC ?/00163401/(LACTULOSE) [Concomitant]
  7. FOLIC ACID (FOLIC ACID) [Concomitant]
  8. BACTRIM ?/00086101/(BACTRIM? /00086101/) [Concomitant]
  9. HUMAN ALBUMIN [Concomitant]
  10. FUROSEMIDE (FUROSEMIDE) [Concomitant]
  11. CEFOTAXIME (CEFOTAXIME) [Concomitant]
  12. AMIKACINE (AMIKACIN) [Concomitant]
  13. PARACETAMOL (PARACETAMOL) [Concomitant]
  14. METHYLPREDNISOLONE (METHYLPREDNISOLONE) [Concomitant]
  15. PIPERACILLIN W /TAZOBACTAM(PIPERACILLIN W/TAZOBACTAM) [Concomitant]

REACTIONS (9)
  - Sepsis [None]
  - Hypotension [None]
  - Pneumocystis test positive [None]
  - Renal impairment [None]
  - Renal failure acute [None]
  - Renal tubular necrosis [None]
  - Lung infection [None]
  - Drug hypersensitivity [None]
  - Infusion related reaction [None]
